FAERS Safety Report 9515605 (Version 1)
Quarter: 2013Q1

REPORT INFORMATION
  Report Type: Spontaneous
  Country: US (occurrence: None)
  Receive Date: 20130305
  Receipt Date: 20130305
  Transmission Date: 20140127
  Serious: Yes (Other)
  Sender: FDA-Public Use
  Company Number: 163-21880-12112612

PATIENT
  Sex: Male
  Weight: 90.99 kg

DRUGS (3)
  1. REVLIMID (LENALIDOMIDE) (25 MILLIGRAM, CAPSULES) [Suspect]
     Indication: PLASMA CELL MYELOMA
     Dosage: 25 MG, 1 IN 1 D, PO
     Route: 048
     Dates: start: 20100316
  2. IMODIUM (LOPERADMIDE) (UNKNOWN) [Concomitant]
  3. LUMIGAN [Concomitant]

REACTIONS (1)
  - Platelet count decreased [None]
